FAERS Safety Report 8775183 (Version 3)
Quarter: 2013Q1

REPORT INFORMATION
  Report Type: Report from Study
  Country: US (occurrence: US)
  Receive Date: 20120906
  Receipt Date: 20130121
  Transmission Date: 20140127
  Serious: Yes (Death)
  Sender: FDA-Public Use
  Company Number: US-ASTELLAS-2012US007431

PATIENT
  Age: 53 Year
  Sex: Male
  Weight: 84 kg

DRUGS (6)
  1. OSI-906 [Suspect]
     Indication: NON-SMALL CELL LUNG CANCER
     Dosage: 150 MG, Q12 HOURS
     Route: 048
     Dates: start: 20120209, end: 20120822
  2. ERLOTINIB [Suspect]
     Indication: NON-SMALL CELL LUNG CANCER
     Dosage: 150 MG, UID/QD
     Route: 048
     Dates: start: 20120209, end: 20120822
  3. PERCOCET                           /00446701/ [Concomitant]
     Indication: PAIN
     Dosage: UNK, 10/325
     Route: 065
     Dates: start: 20120104, end: 20120822
  4. AUGMENTIN                          /00756801/ [Concomitant]
     Indication: BRONCHITIS
     Dosage: UNK
     Route: 065
     Dates: start: 20120816, end: 20120822
  5. LORCET                             /00607101/ [Concomitant]
     Indication: PAIN
     Dosage: UNK
     Route: 065
     Dates: start: 20120813, end: 20120822
  6. MIRALAX                            /00754501/ [Concomitant]
     Indication: CONSTIPATION
     Dosage: UNK
     Route: 065
     Dates: start: 201201, end: 20120822

REACTIONS (1)
  - Respiratory distress [Fatal]
